FAERS Safety Report 23864292 (Version 1)
Quarter: 2024Q2

REPORT INFORMATION
  Report Type: Spontaneous
  Country: US (occurrence: US)
  Receive Date: 20240516
  Receipt Date: 20240516
  Transmission Date: 20240716
  Serious: No
  Sender: FDA-Public Use
  Company Number: US-MYLANLABS-2024M1039604

PATIENT
  Sex: Female
  Weight: 72.57 kg

DRUGS (1)
  1. NITROGLYCERIN TRANSDERMAL DELIVERY SYSTEM [Suspect]
     Active Substance: NITROGLYCERIN
     Indication: Angina pectoris
     Dosage: 0.2 MILLIGRAM PER HOUR
     Route: 062

REACTIONS (3)
  - Application site vesicles [Unknown]
  - Application site pruritus [Unknown]
  - Application site pain [Unknown]
